FAERS Safety Report 5759064-5 (Version None)
Quarter: 2008Q2

REPORT INFORMATION
  Report Type: 
  Country: None (occurrence: None)
  Receive Date: 20080602
  Receipt Date: 20080520
  Transmission Date: 20081010
  Serious: Yes (Hospitalization)
  Sender: FDA-Public Use
  Company Number: 167-C5013-08041429

PATIENT
  Age: 61 Year
  Sex: Female
  Weight: 53 kg

DRUGS (4)
  1. CC-5013 (LENALIDOMIDE) (CAPSULES) [Suspect]
     Indication: CHRONIC LYMPHOCYTIC LEUKAEMIA
     Dosage: 2.5 MG, DAILY, ORAL
     Route: 048
     Dates: start: 20080415, end: 20080421
  2. ASPIRIN [Concomitant]
  3. ALLOPURINOL [Concomitant]
  4. LANSOPRAZOLE [Concomitant]

REACTIONS (7)
  - ABDOMINAL MASS [None]
  - ABDOMINAL PAIN [None]
  - BACK PAIN [None]
  - BLOOD PHOSPHORUS INCREASED [None]
  - BLOOD POTASSIUM INCREASED [None]
  - NO THERAPEUTIC RESPONSE [None]
  - TUMOUR FLARE [None]
